FAERS Safety Report 15979918 (Version 1)
Quarter: 2019Q1

REPORT INFORMATION
  Report Type: Spontaneous
  Country: FR (occurrence: FR)
  Receive Date: 20190219
  Receipt Date: 20190219
  Transmission Date: 20190418
  Serious: Yes (Hospitalization)
  Sender: FDA-Public Use
  Company Number: FR-ACCORD-107837

PATIENT
  Age: 61 Year
  Sex: Male
  Weight: 108 kg

DRUGS (5)
  1. FLUINDIONE [Suspect]
     Active Substance: FLUINDIONE
     Indication: CIRCULATING ANTICOAGULANT
     Route: 048
  2. JANUVIA [Suspect]
     Active Substance: SITAGLIPTIN PHOSPHATE
     Indication: TYPE 2 DIABETES MELLITUS
     Route: 048
     Dates: end: 20180607
  3. AMIODARONE [Suspect]
     Active Substance: AMIODARONE
     Indication: VENTRICULAR TACHYCARDIA
     Route: 048
  4. LERCANIDIPINE [Concomitant]
     Active Substance: LERCANIDIPINE
     Indication: HYPERTENSION
     Route: 048
  5. RAMIPRIL. [Suspect]
     Active Substance: RAMIPRIL
     Indication: HYPERTENSION
     Route: 048

REACTIONS (2)
  - Nephropathy [Not Recovered/Not Resolved]
  - Nephroangiosclerosis [Not Recovered/Not Resolved]

NARRATIVE: CASE EVENT DATE: 20180604
